FAERS Safety Report 9207059 (Version 1)
Quarter: 2013Q2

REPORT INFORMATION
  Report Type: Spontaneous
  Country: US (occurrence: US)
  Receive Date: 20130403
  Receipt Date: 20130403
  Transmission Date: 20140414
  Serious: Yes (Other)
  Sender: FDA-Public Use
  Company Number: US-JNJFOC-20130318868

PATIENT
  Sex: Female
  Weight: 68.04 kg

DRUGS (7)
  1. XARELTO [Suspect]
     Indication: THROMBOSIS PROPHYLAXIS
     Route: 048
     Dates: start: 2013
  2. METHOTREXATE [Concomitant]
     Indication: PSORIATIC ARTHROPATHY
     Dosage: 7.5/TABLET/2.5MG ONCE A WEEK
     Route: 048
  3. FOSAMAX [Concomitant]
     Indication: OSTEOPENIA
     Route: 048
  4. LIALDA [Concomitant]
     Indication: COLITIS ULCERATIVE
     Route: 048
  5. FOLIC ACID [Concomitant]
     Indication: PSORIATIC ARTHROPATHY
     Route: 048
  6. CALTRATE WITH VITAMIN D [Concomitant]
     Indication: OSTEOPENIA
     Route: 048
  7. CALTRATE WITH VITAMIN D [Concomitant]
     Indication: ROUTINE HEALTH MAINTENANCE
     Route: 048

REACTIONS (5)
  - Injury [Recovered/Resolved]
  - Haemorrhage [Recovered/Resolved]
  - Contusion [Not Recovered/Not Resolved]
  - Laceration [Recovered/Resolved]
  - Anxiety [Not Recovered/Not Resolved]
